FAERS Safety Report 21620262 (Version 1)
Quarter: 2022Q4

REPORT INFORMATION
  Report Type: Report from Study
  Country: US (occurrence: US)
  Receive Date: 20221121
  Receipt Date: 20221121
  Transmission Date: 20230112
  Serious: No
  Sender: FDA-Public Use
  Company Number: US-ABBVIE-4187222

PATIENT
  Sex: Female

DRUGS (1)
  1. SKYRIZI [Suspect]
     Active Substance: RISANKIZUMAB-RZAA
     Indication: Crohn^s disease
     Dosage: INTRAVENOUS INFUSION

REACTIONS (10)
  - Injection site bruising [Unknown]
  - Injection site inflammation [Unknown]
  - Injection site pruritus [Unknown]
  - Injection site erythema [Unknown]
  - Injection site haematoma [Unknown]
  - Injection site haemorrhage [Unknown]
  - Injection site irritation [Unknown]
  - Injection site pain [Unknown]
  - Injection site swelling [Unknown]
  - Injection site warmth [Unknown]
